FAERS Safety Report 15107866 (Version 1)
Quarter: 2018Q3

REPORT INFORMATION
  Report Type: Spontaneous
  Country: US (occurrence: US)
  Receive Date: 20180704
  Receipt Date: 20180704
  Transmission Date: 20181010
  Serious: No
  Sender: FDA-Public Use
  Company Number: US-SHIRE-US201822223

PATIENT
  Sex: Male

DRUGS (1)
  1. XIIDRA [Suspect]
     Active Substance: LIFITEGRAST
     Indication: DRY EYE
     Dosage: 1 GTT, 2X/DAY:BID (ONE DROP IN EACH EYE MORNING/EVENING)
     Route: 047
     Dates: start: 20180608

REACTIONS (4)
  - Vision blurred [Unknown]
  - Abnormal sensation in eye [Unknown]
  - Instillation site pain [Unknown]
  - Instillation site foreign body sensation [Unknown]
